FAERS Safety Report 4720349-2 (Version None)
Quarter: 2005Q3

REPORT INFORMATION
  Report Type: 
  Country: None (occurrence: None)
  Receive Date: 20050719
  Receipt Date: 20050701
  Transmission Date: 20060218
  Serious: Yes (Death)
  Sender: FDA-Public Use
  Company Number: 2005BI010636

PATIENT
  Age: 74 Year
  Sex: Male

DRUGS (9)
  1. AMEVIVE [Suspect]
     Indication: PSORIASIS
     Dosage: 15 MG QW IM
     Route: 030
     Dates: start: 20050314, end: 20050512
  2. GLUCOTROL [Concomitant]
  3. LESCOL [Concomitant]
  4. COUMADIN [Concomitant]
  5. LASIX [Concomitant]
  6. SPIRONOLACTONE [Concomitant]
  7. LOTREL [Concomitant]
  8. ALLEGRA [Concomitant]
  9. METOPROLOL [Concomitant]

REACTIONS (2)
  - DRUG HYPERSENSITIVITY [None]
  - IRON DEFICIENCY [None]
